FAERS Safety Report 6244934-4 (Version None)
Quarter: 2009Q2

REPORT INFORMATION
  Report Type: 
  Country: None (occurrence: None)
  Receive Date: 20090619
  Receipt Date: 20090301
  Transmission Date: 20091009
  Serious: No
  Sender: FDA-Public Use
  Company Number: ALL1-2009-00544

PATIENT
  Age: 8 Year
  Sex: Male
  Weight: 38.5 kg

DRUGS (1)
  1. VYVANSE [Suspect]
     Indication: ATTENTION DEFICIT/HYPERACTIVITY DISORDER
     Dosage: 30 MG, 1X/DAY:QD, ORAL
     Route: 048
     Dates: start: 20090228

REACTIONS (4)
  - FLUSHING [None]
  - GASTRIC DISORDER [None]
  - PRURITUS [None]
  - SOCIAL AVOIDANT BEHAVIOUR [None]
